FAERS Safety Report 19034603 (Version 1)
Quarter: 2021Q1

REPORT INFORMATION
  Report Type: Spontaneous
  Country: FR (occurrence: FR)
  Receive Date: 20210319
  Receipt Date: 20210319
  Transmission Date: 20210420
  Serious: Yes (Hospitalization)
  Sender: FDA-Public Use
  Company Number: FR-US-PROVELL PHARMACEUTICALS LLC-9222361

PATIENT
  Age: 42 Year
  Sex: Female

DRUGS (2)
  1. LEVOTHYROX [Suspect]
     Active Substance: LEVOTHYROXINE
     Indication: BENIGN NEOPLASM OF THYROID GLAND
  2. LEVOTHYROX [Suspect]
     Active Substance: LEVOTHYROXINE
     Indication: GOITRE
     Dosage: SINCE 02 MAY 2020.
     Dates: end: 20210201

REACTIONS (14)
  - Depression [Recovering/Resolving]
  - Impaired work ability [Recovering/Resolving]
  - Weight decreased [Recovering/Resolving]
  - Anxiety [Recovering/Resolving]
  - Feeling cold [Recovering/Resolving]
  - Apathy [Not Recovered/Not Resolved]
  - Muscle spasms [Recovering/Resolving]
  - Drug intolerance [Unknown]
  - Decreased appetite [Recovering/Resolving]
  - Headache [Recovering/Resolving]
  - Crying [Recovered/Resolved]
  - Psychiatric symptom [Recovering/Resolving]
  - Constipation [Recovering/Resolving]
  - Diarrhoea [Recovering/Resolving]

NARRATIVE: CASE EVENT DATE: 2020
